FAERS Safety Report 23297983 (Version 5)
Quarter: 2025Q3

REPORT INFORMATION
  Report Type: Spontaneous
  Country: EU (occurrence: EU)
  Receive Date: 20231214
  Receipt Date: 20250911
  Transmission Date: 20251020
  Serious: Yes (Other)
  Sender: SANDOZ
  Company Number: EU-002147023-NVSC2021DE308888

PATIENT
  Age: 77 Year
  Sex: Male
  Weight: 77 kg

DRUGS (275)
  1. ASPIRIN CALCIUM [Suspect]
     Active Substance: ASPIRIN CALCIUM
     Indication: Product used for unknown indication
     Route: 065
  2. IBUPROFEN [Suspect]
     Active Substance: IBUPROFEN
     Indication: Product used for unknown indication
     Route: 065
  3. IBUPROFEN [Suspect]
     Active Substance: IBUPROFEN
     Route: 065
  4. IBUPROFEN [Suspect]
     Active Substance: IBUPROFEN
     Route: 065
  5. ASPIRIN [Suspect]
     Active Substance: ASPIRIN
     Indication: Product used for unknown indication
     Route: 065
  6. ASPIRIN [Suspect]
     Active Substance: ASPIRIN
     Route: 065
  7. ASPIRIN [Suspect]
     Active Substance: ASPIRIN
     Indication: Product used for unknown indication
     Route: 065
  8. ASPIRIN [Suspect]
     Active Substance: ASPIRIN
     Route: 065
  9. ASPIRIN [Suspect]
     Active Substance: ASPIRIN
     Route: 065
  10. ASPIRIN [Suspect]
     Active Substance: ASPIRIN
     Route: 065
  11. ASPIRIN [Suspect]
     Active Substance: ASPIRIN
     Route: 065
  12. ASPIRIN [Suspect]
     Active Substance: ASPIRIN
     Route: 065
  13. ASPIRIN [Suspect]
     Active Substance: ASPIRIN
     Route: 065
  14. ASPIRIN [Suspect]
     Active Substance: ASPIRIN
     Route: 065
  15. ASPIRIN [Suspect]
     Active Substance: ASPIRIN
     Route: 065
  16. ASPIRIN [Suspect]
     Active Substance: ASPIRIN
     Route: 065
  17. ASPIRIN [Suspect]
     Active Substance: ASPIRIN
     Route: 065
  18. ATROVENT [Suspect]
     Active Substance: IPRATROPIUM BROMIDE
     Route: 065
  19. ATROVENT [Suspect]
     Active Substance: IPRATROPIUM BROMIDE
     Indication: Chest discomfort
     Route: 065
  20. ATROVENT [Suspect]
     Active Substance: IPRATROPIUM BROMIDE
     Indication: Cough
     Route: 065
  21. ATROVENT [Suspect]
     Active Substance: IPRATROPIUM BROMIDE
     Indication: Cough
     Route: 065
  22. ATROVENT [Suspect]
     Active Substance: IPRATROPIUM BROMIDE
     Indication: Dysphonia
     Route: 065
  23. ATROVENT [Suspect]
     Active Substance: IPRATROPIUM BROMIDE
     Indication: Dyspnoea
     Route: 065
  24. ATROVENT [Suspect]
     Active Substance: IPRATROPIUM BROMIDE
     Indication: Nasopharyngitis
     Route: 065
  25. ATROVENT [Suspect]
     Active Substance: IPRATROPIUM BROMIDE
     Indication: Pneumothorax
     Route: 065
  26. ATROVENT [Suspect]
     Active Substance: IPRATROPIUM BROMIDE
     Indication: Pneumothorax
     Route: 065
  27. ATROVENT [Suspect]
     Active Substance: IPRATROPIUM BROMIDE
     Indication: Pneumothorax
     Route: 065
  28. ATROVENT [Suspect]
     Active Substance: IPRATROPIUM BROMIDE
     Indication: Pneumothorax
     Route: 065
  29. ATROVENT [Suspect]
     Active Substance: IPRATROPIUM BROMIDE
     Indication: Secretion discharge
     Route: 065
  30. ATROVENT [Suspect]
     Active Substance: IPRATROPIUM BROMIDE
     Indication: Secretion discharge
     Route: 065
  31. ATROVENT [Suspect]
     Active Substance: IPRATROPIUM BROMIDE
     Indication: Secretion discharge
     Route: 065
  32. ATROVENT [Suspect]
     Active Substance: IPRATROPIUM BROMIDE
     Indication: Nasopharyngitis
     Route: 055
     Dates: start: 2018, end: 2018
  33. ATROVENT [Suspect]
     Active Substance: IPRATROPIUM BROMIDE
     Indication: Secretion discharge
     Route: 065
  34. ATROVENT [Suspect]
     Active Substance: IPRATROPIUM BROMIDE
     Route: 065
  35. ATROVENT [Suspect]
     Active Substance: IPRATROPIUM BROMIDE
     Route: 065
  36. ATROVENT [Suspect]
     Active Substance: IPRATROPIUM BROMIDE
     Route: 065
  37. ATROVENT [Suspect]
     Active Substance: IPRATROPIUM BROMIDE
     Route: 065
  38. ATROVENT [Suspect]
     Active Substance: IPRATROPIUM BROMIDE
     Route: 065
  39. ATROVENT [Suspect]
     Active Substance: IPRATROPIUM BROMIDE
     Route: 065
  40. ATROVENT [Suspect]
     Active Substance: IPRATROPIUM BROMIDE
     Route: 065
  41. ATROVENT [Suspect]
     Active Substance: IPRATROPIUM BROMIDE
     Route: 065
  42. BIOTIN [Suspect]
     Active Substance: BIOTIN
     Indication: Product used for unknown indication
     Dosage: UNK, QD (1-0-0)
     Route: 065
  43. BIOTIN [Suspect]
     Active Substance: BIOTIN
     Route: 065
  44. BISOPROLOL [Suspect]
     Active Substance: BISOPROLOL
     Dosage: 1 DOSAGE FORM, QW, ROUTE: RESPIRATORY  (INHALATION)
     Route: 055
     Dates: start: 20201210
  45. BISOPROLOL [Suspect]
     Active Substance: BISOPROLOL
     Dosage: 1 DOSAGE FORM, DAILY, QD (1-0-0)
     Route: 065
     Dates: start: 20201210
  46. BISOPROLOL [Suspect]
     Active Substance: BISOPROLOL
     Dosage: UNK, QD
     Route: 065
  47. BISOPROLOL [Suspect]
     Active Substance: BISOPROLOL
     Indication: Product used for unknown indication
     Dosage: UNK, QD (1-0-0)
     Route: 065
     Dates: start: 20201210
  48. BISOPROLOL [Suspect]
     Active Substance: BISOPROLOL
     Route: 065
  49. CALCIUM [Suspect]
     Active Substance: CALCIUM
     Dosage: UNK, QD
     Route: 065
  50. CALCIUM [Suspect]
     Active Substance: CALCIUM
     Dosage: UNK, Q12H (STRENGTH:500 MG)
     Route: 065
  51. CALCIUM [Suspect]
     Active Substance: CALCIUM
     Indication: Product used for unknown indication
     Dosage: (STRENGTH: 500) BID (1-0-1)
     Route: 065
  52. CALCIUM [Suspect]
     Active Substance: CALCIUM
     Route: 065
  53. CALCIUM [Suspect]
     Active Substance: CALCIUM
     Route: 065
  54. CLOPIDOGREL BESILATE [Suspect]
     Active Substance: CLOPIDOGREL BESILATE
     Indication: Product used for unknown indication
     Route: 065
  55. CALCIUM PANTOTHENATE [Suspect]
     Active Substance: CALCIUM PANTOTHENATE
     Indication: Product used for unknown indication
     Dosage: UNK UNK, EVERY 8 HOURS (UNK UNK, EVERY 8 HRS)
     Route: 065
  56. CALCIUM PANTOTHENATE [Suspect]
     Active Substance: CALCIUM PANTOTHENATE
     Route: 065
  57. COLESEVELAM HYDROCHLORIDE [Suspect]
     Active Substance: COLESEVELAM HYDROCHLORIDE
     Indication: Product used for unknown indication
     Route: 065
  58. COLESEVELAM HYDROCHLORIDE [Suspect]
     Active Substance: COLESEVELAM HYDROCHLORIDE
     Route: 065
  59. COLESEVELAM HYDROCHLORIDE [Suspect]
     Active Substance: COLESEVELAM HYDROCHLORIDE
     Route: 065
  60. COLESEVELAM HYDROCHLORIDE [Suspect]
     Active Substance: COLESEVELAM HYDROCHLORIDE
     Route: 065
  61. COLESEVELAM HYDROCHLORIDE [Suspect]
     Active Substance: COLESEVELAM HYDROCHLORIDE
     Route: 065
  62. COLESEVELAM HYDROCHLORIDE [Suspect]
     Active Substance: COLESEVELAM HYDROCHLORIDE
     Route: 065
  63. COLESEVELAM HYDROCHLORIDE [Suspect]
     Active Substance: COLESEVELAM HYDROCHLORIDE
     Route: 065
  64. COLESEVELAM HYDROCHLORIDE [Suspect]
     Active Substance: COLESEVELAM HYDROCHLORIDE
     Route: 065
  65. COLESEVELAM HYDROCHLORIDE [Suspect]
     Active Substance: COLESEVELAM HYDROCHLORIDE
     Route: 065
  66. COLESEVELAM HYDROCHLORIDE [Suspect]
     Active Substance: COLESEVELAM HYDROCHLORIDE
     Route: 065
  67. CIALIS [Suspect]
     Active Substance: TADALAFIL
     Indication: Product used for unknown indication
     Route: 065
  68. CIALIS [Suspect]
     Active Substance: TADALAFIL
     Route: 065
  69. CIALIS [Suspect]
     Active Substance: TADALAFIL
     Route: 065
  70. CLOPIDOGREL [Suspect]
     Active Substance: CLOPIDOGREL BISULFATE
     Indication: Product used for unknown indication
     Route: 065
     Dates: start: 20201210
  71. CLOPIDOGREL [Suspect]
     Active Substance: CLOPIDOGREL BISULFATE
     Route: 065
     Dates: start: 20201210
  72. CRESTOR [Suspect]
     Active Substance: ROSUVASTATIN CALCIUM
     Indication: Product used for unknown indication
     Route: 065
  73. CRESTOR [Suspect]
     Active Substance: ROSUVASTATIN CALCIUM
     Route: 065
  74. CRESTOR [Suspect]
     Active Substance: ROSUVASTATIN CALCIUM
     Route: 065
  75. CRESTOR [Suspect]
     Active Substance: ROSUVASTATIN CALCIUM
     Route: 065
  76. CRESTOR [Suspect]
     Active Substance: ROSUVASTATIN CALCIUM
     Route: 065
  77. DICLOFENAC DIETHYLAMINE [Suspect]
     Active Substance: DICLOFENAC DIETHYLAMINE
     Indication: Product used for unknown indication
     Route: 065
  78. DICLOFENAC DIETHYLAMINE [Suspect]
     Active Substance: DICLOFENAC DIETHYLAMINE
     Route: 065
  79. DICLOFENAC DIETHYLAMINE [Suspect]
     Active Substance: DICLOFENAC DIETHYLAMINE
     Route: 065
  80. .ALPHA.-TOCOPHEROL ACETATE, DL- [Suspect]
     Active Substance: .ALPHA.-TOCOPHEROL ACETATE, DL-
     Indication: Product used for unknown indication
     Route: 065
  81. MOMETASONE [Suspect]
     Active Substance: MOMETASONE
     Route: 065
  82. MOMETASONE [Suspect]
     Active Substance: MOMETASONE
     Route: 065
  83. MOMETASONE [Suspect]
     Active Substance: MOMETASONE
     Route: 065
  84. MOMETASONE [Suspect]
     Active Substance: MOMETASONE
     Indication: Product used for unknown indication
     Route: 065
  85. MOMETASONE [Suspect]
     Active Substance: MOMETASONE
     Route: 065
  86. ERGOCALCIFEROL [Suspect]
     Active Substance: ERGOCALCIFEROL
     Indication: Product used for unknown indication
     Dosage: 2000 IU, QW
     Route: 065
  87. IBUPROFEN [Suspect]
     Active Substance: IBUPROFEN
     Indication: Product used for unknown indication
     Route: 065
  88. MAGNESIUM OROTATE [Suspect]
     Active Substance: MAGNESIUM OROTATE
     Dosage: UNK, TID (3-2-3)
     Route: 065
  89. MAGNESIUM OROTATE [Suspect]
     Active Substance: MAGNESIUM OROTATE
     Indication: Product used for unknown indication
     Route: 065
  90. MAGNESIUM OROTATE [Suspect]
     Active Substance: MAGNESIUM OROTATE
     Route: 065
  91. MAGNESIUM OROTATE [Suspect]
     Active Substance: MAGNESIUM OROTATE
     Route: 065
  92. MAGNESIUM OROTATE [Suspect]
     Active Substance: MAGNESIUM OROTATE
     Route: 065
  93. MAGNESIUM OROTATE [Suspect]
     Active Substance: MAGNESIUM OROTATE
     Route: 065
  94. MAGNESIUM OROTATE [Suspect]
     Active Substance: MAGNESIUM OROTATE
     Indication: Product used for unknown indication
     Route: 065
  95. MOMETASONE FUROATE [Suspect]
     Active Substance: MOMETASONE FUROATE
     Dosage: 2 DOSAGE FORM, Q12H
     Route: 065
  96. MOMETASONE FUROATE [Suspect]
     Active Substance: MOMETASONE FUROATE
     Route: 065
  97. MOMETASONE FUROATE [Suspect]
     Active Substance: MOMETASONE FUROATE
     Route: 065
  98. MOMETASONE FUROATE [Suspect]
     Active Substance: MOMETASONE FUROATE
     Indication: Product used for unknown indication
     Route: 065
  99. MOMETASONE FUROATE [Suspect]
     Active Substance: MOMETASONE FUROATE
     Route: 065
  100. MOMETASONE FUROATE [Suspect]
     Active Substance: MOMETASONE FUROATE
     Route: 065
  101. MOMETASONE FUROATE [Suspect]
     Active Substance: MOMETASONE FUROATE
     Dosage: 2 DOSAGE FORM, Q12H
     Route: 065
  102. MOMETASONE FUROATE [Suspect]
     Active Substance: MOMETASONE FUROATE
     Dosage: 2 DOSAGE FORM, DAILY(1 IN 0.5 DAY)
     Route: 065
  103. MOMETASONE FUROATE [Suspect]
     Active Substance: MOMETASONE FUROATE
     Route: 065
  104. MOMETASONE FUROATE [Suspect]
     Active Substance: MOMETASONE FUROATE
     Dosage: 2 DOSAGE FORM, BID (2 PUFF(S), BID 1-0-1)
     Route: 065
  105. MOMETASONE FUROATE [Suspect]
     Active Substance: MOMETASONE FUROATE
     Route: 065
  106. MOMETASONE FUROATE [Suspect]
     Active Substance: MOMETASONE FUROATE
     Route: 065
  107. MOMETASONE FUROATE [Suspect]
     Active Substance: MOMETASONE FUROATE
     Indication: Product used for unknown indication
     Route: 065
  108. MOMETASONE FUROATE [Suspect]
     Active Substance: MOMETASONE FUROATE
     Route: 065
  109. MOMETASONE FUROATE [Suspect]
     Active Substance: MOMETASONE FUROATE
     Route: 065
  110. MOMETASONE FUROATE [Suspect]
     Active Substance: MOMETASONE FUROATE
     Dosage: 2 PUFFS BID
     Route: 065
  111. MOMETASONE FUROATE [Suspect]
     Active Substance: MOMETASONE FUROATE
     Dosage: 2 PUFFS BID
     Route: 065
  112. MOMETASONE FUROATE [Suspect]
     Active Substance: MOMETASONE FUROATE
     Indication: Product used for unknown indication
     Route: 065
  113. MOMETASONE FUROATE [Suspect]
     Active Substance: MOMETASONE FUROATE
     Route: 065
  114. MOMETASONE FUROATE [Suspect]
     Active Substance: MOMETASONE FUROATE
     Route: 065
  115. MOMETASONE FUROATE [Suspect]
     Active Substance: MOMETASONE FUROATE
     Route: 065
  116. MOMETASONE FUROATE [Suspect]
     Active Substance: MOMETASONE FUROATE
     Route: 065
  117. MOMETASONE FUROATE [Suspect]
     Active Substance: MOMETASONE FUROATE
     Route: 065
  118. MOMETASONE FUROATE [Suspect]
     Active Substance: MOMETASONE FUROATE
     Route: 065
  119. AMBROXOL HYDROCHLORIDE [Suspect]
     Active Substance: AMBROXOL HYDROCHLORIDE
     Indication: Product used for unknown indication
     Route: 065
  120. AMBROXOL HYDROCHLORIDE [Suspect]
     Active Substance: AMBROXOL HYDROCHLORIDE
     Route: 055
  121. AMBROXOL HYDROCHLORIDE [Suspect]
     Active Substance: AMBROXOL HYDROCHLORIDE
     Route: 055
  122. AMBROXOL HYDROCHLORIDE [Suspect]
     Active Substance: AMBROXOL HYDROCHLORIDE
     Route: 055
  123. AMBROXOL HYDROCHLORIDE [Suspect]
     Active Substance: AMBROXOL HYDROCHLORIDE
     Route: 055
  124. SOAP [Suspect]
     Active Substance: SOAP
     Indication: Bronchitis
     Route: 065
  125. SOAP [Suspect]
     Active Substance: SOAP
     Route: 065
  126. SOAP [Suspect]
     Active Substance: SOAP
     Indication: Dyspnoea
     Route: 065
  127. SOAP [Suspect]
     Active Substance: SOAP
     Route: 065
  128. SOAP [Suspect]
     Active Substance: SOAP
     Indication: Asthma
     Route: 065
  129. SOAP [Suspect]
     Active Substance: SOAP
     Indication: Product used for unknown indication
     Route: 065
  130. SOAP [Suspect]
     Active Substance: SOAP
     Indication: Secretion discharge
     Route: 065
  131. SOAP [Suspect]
     Active Substance: SOAP
     Indication: Dysphonia
     Route: 065
  132. SOAP [Suspect]
     Active Substance: SOAP
     Indication: Cough
     Route: 065
  133. SOAP [Suspect]
     Active Substance: SOAP
     Indication: Nasopharyngitis
     Route: 065
  134. SOAP [Suspect]
     Active Substance: SOAP
     Indication: Pneumothorax
     Route: 065
  135. PRALUENT [Suspect]
     Active Substance: ALIROCUMAB
     Indication: Product used for unknown indication
     Route: 065
  136. PRALUENT [Suspect]
     Active Substance: ALIROCUMAB
     Route: 065
  137. PRALUENT [Suspect]
     Active Substance: ALIROCUMAB
     Route: 065
  138. PRALUENT [Suspect]
     Active Substance: ALIROCUMAB
     Route: 065
  139. CALCIUM PANTOTHENATE [Suspect]
     Active Substance: CALCIUM PANTOTHENATE
     Indication: Product used for unknown indication
     Dosage: (2-0-1) TID
     Route: 065
  140. CALCIUM PANTOTHENATE [Suspect]
     Active Substance: CALCIUM PANTOTHENATE
     Route: 065
  141. CALCIUM PANTOTHENATE [Suspect]
     Active Substance: CALCIUM PANTOTHENATE
     Route: 065
  142. CALCIUM PANTOTHENATE [Suspect]
     Active Substance: CALCIUM PANTOTHENATE
     Route: 065
  143. CALCIUM PANTOTHENATE [Suspect]
     Active Substance: CALCIUM PANTOTHENATE
     Route: 065
  144. DIETARY SUPPLEMENT [Suspect]
     Active Substance: DIETARY SUPPLEMENT
     Indication: Product used for unknown indication
     Route: 065
  145. HERBALS [Suspect]
     Active Substance: HERBALS
     Indication: Product used for unknown indication
     Route: 065
  146. HERBALS [Suspect]
     Active Substance: HERBALS
     Route: 065
  147. HERBALS [Suspect]
     Active Substance: HERBALS
     Route: 065
  148. HERBALS [Suspect]
     Active Substance: HERBALS
     Route: 065
  149. HERBALS [Suspect]
     Active Substance: HERBALS
     Route: 065
  150. HERBALS [Suspect]
     Active Substance: HERBALS
     Route: 065
  151. ROSUVASTATIN CALCIUM [Suspect]
     Active Substance: ROSUVASTATIN CALCIUM
     Indication: Product used for unknown indication
     Route: 065
  152. REPATHA [Suspect]
     Active Substance: EVOLOCUMAB
     Dosage: 1 DF, QW
     Route: 065
  153. REPATHA [Suspect]
     Active Substance: EVOLOCUMAB
     Dosage: 1 DF, QW
     Route: 065
  154. REPATHA [Suspect]
     Active Substance: EVOLOCUMAB
     Dosage: 1 DF, QW
     Route: 065
  155. REPATHA [Suspect]
     Active Substance: EVOLOCUMAB
     Dosage: 1 DF, QW
     Route: 065
  156. REPATHA [Suspect]
     Active Substance: EVOLOCUMAB
     Dosage: 1 DF, Q3W
     Route: 065
  157. REPATHA [Suspect]
     Active Substance: EVOLOCUMAB
     Route: 065
  158. REPATHA [Suspect]
     Active Substance: EVOLOCUMAB
     Indication: Product used for unknown indication
     Dosage: 1 DF, Q3W
     Route: 065
  159. REPATHA [Suspect]
     Active Substance: EVOLOCUMAB
     Dosage: UNK, Q3W
     Route: 065
  160. RIVAROXABAN [Suspect]
     Active Substance: RIVAROXABAN
     Indication: Product used for unknown indication
     Route: 065
  161. ALBUTEROL [Suspect]
     Active Substance: ALBUTEROL
     Indication: Nasopharyngitis
     Route: 055
     Dates: start: 2018, end: 2018
  162. ALBUTEROL [Suspect]
     Active Substance: ALBUTEROL
     Indication: Cough
     Route: 065
     Dates: start: 2018, end: 2018
  163. ALBUTEROL [Suspect]
     Active Substance: ALBUTEROL
     Indication: Dysphonia
  164. ALBUTEROL [Suspect]
     Active Substance: ALBUTEROL
     Indication: Dyspnoea
  165. ALBUTEROL [Suspect]
     Active Substance: ALBUTEROL
     Indication: Pneumothorax
  166. ALBUTEROL [Suspect]
     Active Substance: ALBUTEROL
     Indication: Secretion discharge
  167. ALBUTEROL SULFATE [Suspect]
     Active Substance: ALBUTEROL SULFATE
     Indication: Chest discomfort
     Route: 065
  168. ALBUTEROL SULFATE [Suspect]
     Active Substance: ALBUTEROL SULFATE
     Indication: Dysphonia
     Route: 065
  169. ALBUTEROL SULFATE [Suspect]
     Active Substance: ALBUTEROL SULFATE
     Indication: Pneumothorax
     Route: 065
  170. ALBUTEROL SULFATE [Suspect]
     Active Substance: ALBUTEROL SULFATE
     Indication: Productive cough
     Route: 065
  171. ALBUTEROL SULFATE [Suspect]
     Active Substance: ALBUTEROL SULFATE
     Indication: Secretion discharge
     Route: 065
  172. ALBUTEROL SULFATE [Suspect]
     Active Substance: ALBUTEROL SULFATE
     Indication: Secretion discharge
     Route: 065
  173. ALBUTEROL SULFATE [Suspect]
     Active Substance: ALBUTEROL SULFATE
     Indication: Secretion discharge
     Route: 065
  174. ALBUTEROL SULFATE [Suspect]
     Active Substance: ALBUTEROL SULFATE
     Indication: Cough
     Route: 065
     Dates: start: 2018, end: 2018
  175. ALBUTEROL SULFATE [Suspect]
     Active Substance: ALBUTEROL SULFATE
     Indication: Cough
     Route: 065
     Dates: start: 2018, end: 2018
  176. ALBUTEROL SULFATE [Suspect]
     Active Substance: ALBUTEROL SULFATE
     Indication: Dysphonia
     Route: 065
     Dates: start: 2018, end: 2018
  177. ALBUTEROL SULFATE [Suspect]
     Active Substance: ALBUTEROL SULFATE
     Indication: Dyspnoea
     Route: 065
     Dates: start: 2018, end: 2018
  178. ALBUTEROL SULFATE [Suspect]
     Active Substance: ALBUTEROL SULFATE
     Indication: Nasopharyngitis
     Route: 065
     Dates: start: 2018, end: 2018
  179. ALBUTEROL SULFATE [Suspect]
     Active Substance: ALBUTEROL SULFATE
     Indication: Pneumothorax
     Route: 065
     Dates: start: 2018, end: 2018
  180. ALBUTEROL SULFATE [Suspect]
     Active Substance: ALBUTEROL SULFATE
     Indication: Pneumothorax
     Route: 065
     Dates: start: 2018, end: 2018
  181. ALBUTEROL SULFATE [Suspect]
     Active Substance: ALBUTEROL SULFATE
     Indication: Chest discomfort
     Route: 065
     Dates: start: 2018, end: 2018
  182. HERBALS\PHENYL SALICYLATE [Suspect]
     Active Substance: HERBALS\PHENYL SALICYLATE
     Indication: Asthma
     Route: 065
  183. HERBALS\PHENYL SALICYLATE [Suspect]
     Active Substance: HERBALS\PHENYL SALICYLATE
     Dosage: 10 DOSAGE FORM, QD (10 DROP (1/12  MILLILITRE) DAILY)
     Route: 065
  184. HERBALS\PHENYL SALICYLATE [Suspect]
     Active Substance: HERBALS\PHENYL SALICYLATE
     Dosage: 10 DRP, QD(10 GTT DROPS, QD)
     Route: 065
  185. HERBALS\PHENYL SALICYLATE [Suspect]
     Active Substance: HERBALS\PHENYL SALICYLATE
     Indication: Bronchitis
     Dosage: 10 DROPS BID (1-0-1)
     Route: 065
  186. HERBALS\PHENYL SALICYLATE [Suspect]
     Active Substance: HERBALS\PHENYL SALICYLATE
     Route: 065
  187. HERBALS\PHENYL SALICYLATE [Suspect]
     Active Substance: HERBALS\PHENYL SALICYLATE
     Indication: Asthma
     Dosage: 10 DRP, QD
     Route: 065
  188. HERBALS\PHENYL SALICYLATE [Suspect]
     Active Substance: HERBALS\PHENYL SALICYLATE
     Indication: Bronchitis
     Dosage: UNK, QD
     Route: 065
  189. TADALAFIL [Suspect]
     Active Substance: TADALAFIL
     Indication: Product used for unknown indication
     Route: 065
  190. TADALAFIL [Suspect]
     Active Substance: TADALAFIL
     Route: 065
  191. TAMSULOSIN [Suspect]
     Active Substance: TAMSULOSIN
     Indication: Product used for unknown indication
     Route: 065
  192. TAMSULOSIN [Suspect]
     Active Substance: TAMSULOSIN
     Route: 065
  193. TAMSULOSIN [Suspect]
     Active Substance: TAMSULOSIN
     Route: 065
  194. TAMSULOSIN [Suspect]
     Active Substance: TAMSULOSIN
     Route: 065
  195. TAMSULOSIN [Suspect]
     Active Substance: TAMSULOSIN
     Route: 065
  196. GINKGO [Suspect]
     Active Substance: GINKGO
     Dosage: 500 MG, BID
     Route: 065
  197. GINKGO [Suspect]
     Active Substance: GINKGO
     Indication: Product used for unknown indication
     Route: 065
  198. TOCOPHEROL [Suspect]
     Active Substance: TOCOPHEROL
     Indication: Product used for unknown indication
     Dosage: 2000 IU, QW
     Route: 065
  199. MAGNESIUM ASPARTATE\POTASSIUM ASPARTATE [Suspect]
     Active Substance: MAGNESIUM ASPARTATE\POTASSIUM ASPARTATE
     Indication: Product used for unknown indication
     Route: 065
  200. MAGNESIUM ASPARTATE\POTASSIUM ASPARTATE [Suspect]
     Active Substance: MAGNESIUM ASPARTATE\POTASSIUM ASPARTATE
     Route: 065
  201. MAGNESIUM ASPARTATE\POTASSIUM ASPARTATE [Suspect]
     Active Substance: MAGNESIUM ASPARTATE\POTASSIUM ASPARTATE
     Route: 065
  202. MAGNESIUM ASPARTATE\POTASSIUM ASPARTATE [Suspect]
     Active Substance: MAGNESIUM ASPARTATE\POTASSIUM ASPARTATE
     Route: 065
  203. VOLTAREN [Suspect]
     Active Substance: DICLOFENAC SODIUM
     Indication: Product used for unknown indication
     Route: 065
  204. FLUTICASONE PROPIONATE\SALMETEROL XINAFOATE [Suspect]
     Active Substance: FLUTICASONE PROPIONATE\SALMETEROL XINAFOATE
     Indication: Chest discomfort
     Route: 065
  205. FLUTICASONE PROPIONATE\SALMETEROL XINAFOATE [Suspect]
     Active Substance: FLUTICASONE PROPIONATE\SALMETEROL XINAFOATE
     Indication: Cough
     Route: 065
  206. FLUTICASONE PROPIONATE\SALMETEROL XINAFOATE [Suspect]
     Active Substance: FLUTICASONE PROPIONATE\SALMETEROL XINAFOATE
     Indication: Dysphonia
     Route: 065
  207. FLUTICASONE PROPIONATE\SALMETEROL XINAFOATE [Suspect]
     Active Substance: FLUTICASONE PROPIONATE\SALMETEROL XINAFOATE
     Indication: Dyspnoea
     Route: 065
  208. FLUTICASONE PROPIONATE\SALMETEROL XINAFOATE [Suspect]
     Active Substance: FLUTICASONE PROPIONATE\SALMETEROL XINAFOATE
     Indication: Pneumothorax
     Route: 065
  209. FLUTICASONE PROPIONATE\SALMETEROL XINAFOATE [Suspect]
     Active Substance: FLUTICASONE PROPIONATE\SALMETEROL XINAFOATE
     Indication: Secretion discharge
     Route: 065
  210. FLUTICASONE PROPIONATE\SALMETEROL XINAFOATE [Suspect]
     Active Substance: FLUTICASONE PROPIONATE\SALMETEROL XINAFOATE
     Indication: Secretion discharge
     Route: 065
  211. FLUTICASONE PROPIONATE\SALMETEROL XINAFOATE [Suspect]
     Active Substance: FLUTICASONE PROPIONATE\SALMETEROL XINAFOATE
     Indication: Nasopharyngitis
     Route: 055
     Dates: start: 2018, end: 2018
  212. FLUTICASONE PROPIONATE\SALMETEROL XINAFOATE [Suspect]
     Active Substance: FLUTICASONE PROPIONATE\SALMETEROL XINAFOATE
     Indication: Pneumothorax
     Route: 065
  213. FLUTICASONE PROPIONATE\SALMETEROL XINAFOATE [Suspect]
     Active Substance: FLUTICASONE PROPIONATE\SALMETEROL XINAFOATE
     Route: 065
  214. FLUTICASONE PROPIONATE\SALMETEROL XINAFOATE [Suspect]
     Active Substance: FLUTICASONE PROPIONATE\SALMETEROL XINAFOATE
     Route: 065
  215. FLUTICASONE PROPIONATE\SALMETEROL XINAFOATE [Suspect]
     Active Substance: FLUTICASONE PROPIONATE\SALMETEROL XINAFOATE
     Route: 065
  216. FLUTICASONE PROPIONATE\SALMETEROL XINAFOATE [Suspect]
     Active Substance: FLUTICASONE PROPIONATE\SALMETEROL XINAFOATE
     Route: 065
  217. FLUTICASONE PROPIONATE\SALMETEROL XINAFOATE [Suspect]
     Active Substance: FLUTICASONE PROPIONATE\SALMETEROL XINAFOATE
     Route: 065
  218. FLUTICASONE PROPIONATE\SALMETEROL XINAFOATE [Suspect]
     Active Substance: FLUTICASONE PROPIONATE\SALMETEROL XINAFOATE
     Route: 065
  219. VITAMIN D [Suspect]
     Active Substance: VITAMIN D NOS
     Indication: Product used for unknown indication
     Dosage: UNK UNK, QW (20,000 I.E)
     Route: 065
  220. VITAMIN E [Suspect]
     Active Substance: .ALPHA.-TOCOPHEROL
     Indication: Product used for unknown indication
     Dosage: UNK, Q2W
     Route: 065
  221. VITAMIN E [Suspect]
     Active Substance: .ALPHA.-TOCOPHEROL
     Dosage: UNK, Q2W
     Route: 065
  222. ACETIC ACID\DELTAMETHRIN [Suspect]
     Active Substance: ACETIC ACID\DELTAMETHRIN
     Route: 065
  223. ACETIC ACID\DELTAMETHRIN [Suspect]
     Active Substance: ACETIC ACID\DELTAMETHRIN
     Dosage: 2000 IU, QD(1000 INTERNATIONAL UNIT, BID )
     Route: 065
  224. ACETIC ACID\DELTAMETHRIN [Suspect]
     Active Substance: ACETIC ACID\DELTAMETHRIN
     Dosage: 500 IU, Q12H
     Route: 065
  225. ACETIC ACID\DELTAMETHRIN [Suspect]
     Active Substance: ACETIC ACID\DELTAMETHRIN
     Route: 065
  226. ACETIC ACID\DELTAMETHRIN [Suspect]
     Active Substance: ACETIC ACID\DELTAMETHRIN
     Indication: Product used for unknown indication
     Route: 065
  227. ACETIC ACID\DELTAMETHRIN [Suspect]
     Active Substance: ACETIC ACID\DELTAMETHRIN
     Route: 065
  228. XARELTO [Suspect]
     Active Substance: RIVAROXABAN
     Indication: Product used for unknown indication
     Route: 065
  229. XARELTO [Suspect]
     Active Substance: RIVAROXABAN
     Route: 065
  230. XARELTO [Suspect]
     Active Substance: RIVAROXABAN
     Route: 065
  231. XARELTO [Suspect]
     Active Substance: RIVAROXABAN
     Route: 065
  232. XARELTO [Suspect]
     Active Substance: RIVAROXABAN
     Route: 065
  233. AMBROXOL HYDROCHLORIDE [Concomitant]
     Active Substance: AMBROXOL HYDROCHLORIDE
     Indication: Product used for unknown indication
     Route: 065
  234. AMBROXOL HYDROCHLORIDE [Concomitant]
     Active Substance: AMBROXOL HYDROCHLORIDE
     Route: 065
  235. AMBROXOL HYDROCHLORIDE [Concomitant]
     Active Substance: AMBROXOL HYDROCHLORIDE
     Route: 065
  236. AMBROXOL HYDROCHLORIDE [Concomitant]
     Active Substance: AMBROXOL HYDROCHLORIDE
     Route: 065
  237. ASPIRIN [Concomitant]
     Active Substance: ASPIRIN
     Indication: Product used for unknown indication
     Route: 065
  238. CALCIUM [Concomitant]
     Active Substance: CALCIUM
     Indication: Product used for unknown indication
     Dosage: 500 MG, BID
     Route: 065
  239. CALCIUM CARBONATE [Concomitant]
     Active Substance: CALCIUM CARBONATE
     Indication: Product used for unknown indication
     Dosage: 500 MG, QD
     Route: 065
  240. CIALIS [Concomitant]
     Active Substance: TADALAFIL
     Indication: Product used for unknown indication
     Route: 065
  241. CLOPIDOGREL [Concomitant]
     Active Substance: CLOPIDOGREL BISULFATE
     Indication: Product used for unknown indication
     Dosage: UNK, QD
     Route: 065
     Dates: start: 20201210
  242. DICLOFENAC [Concomitant]
     Active Substance: DICLOFENAC
     Indication: Product used for unknown indication
     Route: 065
  243. MOMETASONE [Concomitant]
     Active Substance: MOMETASONE
     Indication: Product used for unknown indication
     Route: 065
  244. EUCALYPTUS GLOBULUS LEAF [Concomitant]
     Active Substance: EUCALYPTUS GLOBULUS LEAF
     Indication: Product used for unknown indication
     Route: 065
  245. EUCALYPTUS GLOBULUS LEAF [Concomitant]
     Active Substance: EUCALYPTUS GLOBULUS LEAF
     Indication: Product used for unknown indication
     Route: 065
  246. EVOLOCUMAB [Concomitant]
     Active Substance: EVOLOCUMAB
     Indication: Product used for unknown indication
     Route: 065
  247. EVOLOCUMAB [Concomitant]
     Active Substance: EVOLOCUMAB
     Route: 065
  248. EVOLOCUMAB [Concomitant]
     Active Substance: EVOLOCUMAB
     Route: 065
  249. EVOLOCUMAB [Concomitant]
     Active Substance: EVOLOCUMAB
     Route: 065
  250. IBUPROFEN [Concomitant]
     Active Substance: IBUPROFEN
     Indication: Product used for unknown indication
     Route: 065
  251. MAGNESIUM ASPARTATE [Concomitant]
     Active Substance: MAGNESIUM ASPARTATE
     Indication: Product used for unknown indication
     Route: 065
  252. PREDNISOLONE [Concomitant]
     Active Substance: PREDNISOLONE
     Indication: Product used for unknown indication
     Route: 065
  253. PREDNISOLONE [Concomitant]
     Active Substance: PREDNISOLONE
     Route: 065
  254. PREDNISOLONE [Concomitant]
     Active Substance: PREDNISOLONE
     Route: 065
  255. PREDNISOLONE [Concomitant]
     Active Substance: PREDNISOLONE
     Route: 065
  256. PREDNISOLONE [Concomitant]
     Active Substance: PREDNISOLONE
     Route: 065
  257. PREDNISOLONE [Concomitant]
     Active Substance: PREDNISOLONE
     Indication: Product used for unknown indication
     Route: 065
  258. PREDNISOLONE [Concomitant]
     Active Substance: PREDNISOLONE
     Route: 065
  259. PREDNISOLONE [Concomitant]
     Active Substance: PREDNISOLONE
     Route: 065
  260. PREDNISOLONE [Concomitant]
     Active Substance: PREDNISOLONE
     Route: 065
  261. REPATHA [Concomitant]
     Active Substance: EVOLOCUMAB
     Indication: Product used for unknown indication
     Dosage: 1 DOSAGE FORM, QW (1 DF, WE (1 DF,  QW) (1 IN 1 WEEK))
     Route: 065
  262. REPATHA [Concomitant]
     Active Substance: EVOLOCUMAB
     Dosage: 1 DOSAGE FORM, QW (1 DF, WE (1 DF,  QW), PRE-FILLED SYRINGE
     Route: 065
  263. REPATHA [Concomitant]
     Active Substance: EVOLOCUMAB
     Dosage: 1 DOSAGE FORM, QW (1 DF, WE (1 DF,  QW), PRE-FILLED SYRINGE
     Route: 065
  264. REPATHA [Concomitant]
     Active Substance: EVOLOCUMAB
     Route: 065
  265. FLUTICASONE PROPIONATE\SALMETEROL XINAFOATE [Concomitant]
     Active Substance: FLUTICASONE PROPIONATE\SALMETEROL XINAFOATE
     Indication: Cough
     Route: 065
  266. FLUTICASONE PROPIONATE\SALMETEROL XINAFOATE [Concomitant]
     Active Substance: FLUTICASONE PROPIONATE\SALMETEROL XINAFOATE
     Indication: Dysphonia
  267. FLUTICASONE PROPIONATE\SALMETEROL XINAFOATE [Concomitant]
     Active Substance: FLUTICASONE PROPIONATE\SALMETEROL XINAFOATE
     Indication: Dyspnoea
  268. FLUTICASONE PROPIONATE\SALMETEROL XINAFOATE [Concomitant]
     Active Substance: FLUTICASONE PROPIONATE\SALMETEROL XINAFOATE
     Indication: Nasopharyngitis
  269. FLUTICASONE PROPIONATE\SALMETEROL XINAFOATE [Concomitant]
     Active Substance: FLUTICASONE PROPIONATE\SALMETEROL XINAFOATE
     Indication: Pneumothorax
  270. FLUTICASONE PROPIONATE\SALMETEROL XINAFOATE [Concomitant]
     Active Substance: FLUTICASONE PROPIONATE\SALMETEROL XINAFOATE
     Indication: Secretion discharge
  271. GINKGO [Concomitant]
     Active Substance: GINKGO
     Indication: Product used for unknown indication
     Route: 065
  272. VITAMIN D [Concomitant]
     Active Substance: VITAMIN D NOS
     Indication: Product used for unknown indication
     Dosage: UNK UNK, QW
     Route: 065
  273. VITAMIN E [Concomitant]
     Active Substance: .ALPHA.-TOCOPHEROL
     Indication: Product used for unknown indication
     Route: 065
  274. VOLTAREN [Concomitant]
     Active Substance: DICLOFENAC SODIUM
     Indication: Product used for unknown indication
     Route: 065
  275. Votum [Concomitant]
     Indication: Product used for unknown indication
     Route: 065

REACTIONS (28)
  - Coronary artery disease [Unknown]
  - Obstructive sleep apnoea syndrome [Unknown]
  - Plantar fasciitis [Unknown]
  - Chest discomfort [Unknown]
  - Secretion discharge [Unknown]
  - Dysphonia [Not Recovered/Not Resolved]
  - Dyspnoea exertional [Unknown]
  - Cardiac disorder [Unknown]
  - Eosinophilia [Unknown]
  - Muscle spasms [Unknown]
  - Wheezing [Unknown]
  - Fractional exhaled nitric oxide increased [Recovered/Resolved]
  - Nasopharyngitis [Unknown]
  - Brain natriuretic peptide increased [Unknown]
  - Sensation of foreign body [Unknown]
  - Exostosis [Unknown]
  - Pneumothorax [Not Recovered/Not Resolved]
  - Myoglobin blood increased [Unknown]
  - Obstructive airways disorder [Unknown]
  - Atrial fibrillation [Recovered/Resolved]
  - Cough [Not Recovered/Not Resolved]
  - Dyspnoea [Unknown]
  - Plantar fasciitis [Unknown]
  - Chest discomfort [Not Recovered/Not Resolved]
  - Muscle spasms [Unknown]
  - Nasopharyngitis [Unknown]
  - Obstructive airways disorder [Unknown]
  - Myoglobin blood increased [Unknown]

NARRATIVE: CASE EVENT DATE: 20180101
